FAERS Safety Report 7726034-7 (Version None)
Quarter: 2011Q3

REPORT INFORMATION
  Report Type: 
  Country: None (occurrence: None)
  Receive Date: 20110902
  Receipt Date: 20110825
  Transmission Date: 20111222
  Serious: Yes (Hospitalization)
  Sender: FDA-Public Use
  Company Number: CA-ROCHE-791740

PATIENT
  Sex: Male

DRUGS (9)
  1. PREDNISONE [Concomitant]
  2. TRAMADOL HCL [Concomitant]
     Dosage: AS NEEDED
  3. METHOTREXATE [Concomitant]
  4. ASPIRIN [Concomitant]
  5. VITAMIN D [Concomitant]
  6. TOCILIZUMAB [Suspect]
     Indication: RHEUMATOID ARTHRITIS
     Dosage: THERAPY INTERRUPTED DUE TO AE
     Route: 042
     Dates: start: 20110411
  7. CRESTOR [Concomitant]
  8. TOCILIZUMAB [Suspect]
     Route: 042
  9. FOLIC ACID [Concomitant]

REACTIONS (1)
  - SCIATICA [None]
